FAERS Safety Report 20810016 (Version 2)
Quarter: 2022Q2

REPORT INFORMATION
  Report Type: Report from Study
  Country: DE (occurrence: DE)
  Receive Date: 20220510
  Receipt Date: 20220613
  Transmission Date: 20220720
  Serious: Yes (Hospitalization)
  Sender: FDA-Public Use
  Company Number: DE-TAKEDA-2022TUS029125

PATIENT
  Age: 7 Year
  Sex: Female

DRUGS (28)
  1. TEDUGLUTIDE [Suspect]
     Active Substance: TEDUGLUTIDE
     Indication: Short-bowel syndrome
     Dosage: 0.45 MILLIGRAM, QD
     Route: 042
     Dates: start: 20171020, end: 20180309
  2. TEDUGLUTIDE [Suspect]
     Active Substance: TEDUGLUTIDE
     Indication: Short-bowel syndrome
     Dosage: 0.45 MILLIGRAM, QD
     Route: 042
     Dates: start: 20171020, end: 20180309
  3. TEDUGLUTIDE [Suspect]
     Active Substance: TEDUGLUTIDE
     Indication: Short-bowel syndrome
     Dosage: 0.45 MILLIGRAM, QD
     Route: 042
     Dates: start: 20171020, end: 20180309
  4. TEDUGLUTIDE [Suspect]
     Active Substance: TEDUGLUTIDE
     Indication: Short-bowel syndrome
     Dosage: 0.45 MILLIGRAM, QD
     Route: 042
     Dates: start: 20171020, end: 20180309
  5. TEDUGLUTIDE [Suspect]
     Active Substance: TEDUGLUTIDE
     Dosage: 0.55 MILLIGRAM, QD
     Route: 042
     Dates: start: 20180310, end: 20190217
  6. TEDUGLUTIDE [Suspect]
     Active Substance: TEDUGLUTIDE
     Dosage: 0.55 MILLIGRAM, QD
     Route: 042
     Dates: start: 20180310, end: 20190217
  7. TEDUGLUTIDE [Suspect]
     Active Substance: TEDUGLUTIDE
     Dosage: 0.55 MILLIGRAM, QD
     Route: 042
     Dates: start: 20180310, end: 20190217
  8. TEDUGLUTIDE [Suspect]
     Active Substance: TEDUGLUTIDE
     Dosage: 0.55 MILLIGRAM, QD
     Route: 042
     Dates: start: 20180310, end: 20190217
  9. TEDUGLUTIDE [Suspect]
     Active Substance: TEDUGLUTIDE
     Dosage: 0.60 MILLIGRAM, QD
     Route: 042
     Dates: start: 20190218, end: 20190702
  10. TEDUGLUTIDE [Suspect]
     Active Substance: TEDUGLUTIDE
     Dosage: 0.60 MILLIGRAM, QD
     Route: 042
     Dates: start: 20190218, end: 20190702
  11. TEDUGLUTIDE [Suspect]
     Active Substance: TEDUGLUTIDE
     Dosage: 0.60 MILLIGRAM, QD
     Route: 042
     Dates: start: 20190218, end: 20190702
  12. TEDUGLUTIDE [Suspect]
     Active Substance: TEDUGLUTIDE
     Dosage: 0.60 MILLIGRAM, QD
     Route: 042
     Dates: start: 20190218, end: 20190702
  13. TEDUGLUTIDE [Suspect]
     Active Substance: TEDUGLUTIDE
     Dosage: 0.65 MILLIGRAM, QD
     Route: 042
     Dates: start: 20190703, end: 20200105
  14. TEDUGLUTIDE [Suspect]
     Active Substance: TEDUGLUTIDE
     Dosage: 0.65 MILLIGRAM, QD
     Route: 042
     Dates: start: 20190703, end: 20200105
  15. TEDUGLUTIDE [Suspect]
     Active Substance: TEDUGLUTIDE
     Dosage: 0.65 MILLIGRAM, QD
     Route: 042
     Dates: start: 20190703, end: 20200105
  16. TEDUGLUTIDE [Suspect]
     Active Substance: TEDUGLUTIDE
     Dosage: 0.65 MILLIGRAM, QD
     Route: 042
     Dates: start: 20190703, end: 20200105
  17. TEDUGLUTIDE [Suspect]
     Active Substance: TEDUGLUTIDE
     Dosage: 0.62 MILLIGRAM, QD
     Route: 042
     Dates: start: 20200106, end: 20200904
  18. TEDUGLUTIDE [Suspect]
     Active Substance: TEDUGLUTIDE
     Dosage: 0.62 MILLIGRAM, QD
     Route: 042
     Dates: start: 20200106, end: 20200904
  19. TEDUGLUTIDE [Suspect]
     Active Substance: TEDUGLUTIDE
     Dosage: 0.62 MILLIGRAM, QD
     Route: 042
     Dates: start: 20200106, end: 20200904
  20. TEDUGLUTIDE [Suspect]
     Active Substance: TEDUGLUTIDE
     Dosage: 0.62 MILLIGRAM, QD
     Route: 042
     Dates: start: 20200106, end: 20200904
  21. TEDUGLUTIDE [Suspect]
     Active Substance: TEDUGLUTIDE
     Dosage: 0.75 MILLIGRAM, QD
     Route: 042
     Dates: start: 20200905
  22. TEDUGLUTIDE [Suspect]
     Active Substance: TEDUGLUTIDE
     Dosage: 0.75 MILLIGRAM, QD
     Route: 042
     Dates: start: 20200905
  23. TEDUGLUTIDE [Suspect]
     Active Substance: TEDUGLUTIDE
     Dosage: 0.75 MILLIGRAM, QD
     Route: 042
     Dates: start: 20200905
  24. TEDUGLUTIDE [Suspect]
     Active Substance: TEDUGLUTIDE
     Dosage: 0.75 MILLIGRAM, QD
     Route: 042
     Dates: start: 20200905
  25. VITAMIN B12 [Concomitant]
     Active Substance: CYANOCOBALAMIN
     Indication: Vitamin B12 deficiency
     Dosage: 4 GTT DROPS, QD
     Route: 048
     Dates: start: 20200904
  26. FERRLECIT [Concomitant]
     Active Substance: SODIUM FERRIC GLUCONATE COMPLEX
     Indication: Iron deficiency
     Dosage: UNK, SINGLE
     Route: 042
     Dates: start: 20200106, end: 20200106
  27. FERROUS GLUCONATE [Concomitant]
     Active Substance: FERROUS GLUCONATE
     Indication: Supplementation therapy
     Dosage: 10 GTT DROPS, TID
     Route: 048
     Dates: start: 20190702
  28. ESOMEPRAZOLE [Concomitant]
     Active Substance: ESOMEPRAZOLE
     Indication: Gastric disorder
     Dosage: 10 MILLIGRAM, QD
     Route: 048
     Dates: start: 20190703

REACTIONS (1)
  - Psychosocial support [Recovered/Resolved]

NARRATIVE: CASE EVENT DATE: 20211104
